FAERS Safety Report 15525008 (Version 1)
Quarter: 2018Q4

REPORT INFORMATION
  Report Type: Spontaneous
  Country: US (occurrence: US)
  Receive Date: 20181019
  Receipt Date: 20181019
  Transmission Date: 20190205
  Serious: No
  Sender: FDA-Public Use
  Company Number: None

PATIENT
  Age: 63 Year
  Sex: Female
  Weight: 63 kg

DRUGS (12)
  1. DEXILANT [Concomitant]
     Active Substance: DEXLANSOPRAZOLE
  2. STOOL SOFTENER (DOCUSATE) [Concomitant]
     Active Substance: DOCUSATE
  3. SAVELLA [Concomitant]
     Active Substance: MILNACIPRAN HYDROCHLORIDE
  4. SENECOT [Concomitant]
  5. OXYCONTIN [Concomitant]
     Active Substance: OXYCODONE HYDROCHLORIDE
  6. OCYCODONE [Concomitant]
  7. OTEZLA [Suspect]
     Active Substance: APREMILAST
     Indication: PSORIATIC ARTHROPATHY
     Dosage: ?          QUANTITY:1 TABLET(S);?
     Route: 048
     Dates: start: 20180909, end: 20180915
  8. AMBIEN [Concomitant]
     Active Substance: ZOLPIDEM TARTRATE
  9. PROGESTERONE. [Concomitant]
     Active Substance: PROGESTERONE
  10. FLEXEROL [Concomitant]
  11. LEFLUNIMIDE [Concomitant]
  12. VITAMIN D [Concomitant]
     Active Substance: CHOLECALCIFEROL

REACTIONS (8)
  - Product complaint [None]
  - Rhinorrhoea [None]
  - Amnesia [None]
  - Drug ineffective [None]
  - Headache [None]
  - Eye disorder [None]
  - Facial pain [None]
  - Cough [None]

NARRATIVE: CASE EVENT DATE: 20180909
